FAERS Safety Report 8835639 (Version 2)
Quarter: 2013Q1

REPORT INFORMATION
  Report Type: Spontaneous
  Country: FR (occurrence: FR)
  Receive Date: 20121011
  Receipt Date: 20130220
  Transmission Date: 20140127
  Serious: No
  Sender: FDA-Public Use
  Company Number: FR-ASTRAZENECA-2012SE76645

PATIENT
  Age: 72 Year
  Sex: Female

DRUGS (5)
  1. FASLODEX [Suspect]
     Indication: BREAST CANCER
     Route: 058
     Dates: start: 2010, end: 201204
  2. FASLODEX [Suspect]
     Indication: BREAST CANCER
     Route: 058
     Dates: start: 201204
  3. FASLODEX [Suspect]
     Indication: BREAST CANCER
     Dosage: 250 MG/500 MG EVERY FOUR WEEKS
     Route: 030
  4. PREVISCAN [Concomitant]
  5. ANTI-VITAMIN K [Concomitant]

REACTIONS (2)
  - Injection site pain [Recovered/Resolved]
  - Incorrect route of drug administration [Recovered/Resolved]
